FAERS Safety Report 8236420-7 (Version None)
Quarter: 2012Q1

REPORT INFORMATION
  Report Type: 
  Country: None (occurrence: None)
  Receive Date: 20120327
  Receipt Date: 20120322
  Transmission Date: 20120608
  Serious: No
  Sender: FDA-Public Use
  Company Number: US-PFIZER INC-2012074964

PATIENT
  Sex: Male

DRUGS (2)
  1. INLYTA [Suspect]
     Dosage: 4 MG, 2X/DAY
  2. INLYTA [Suspect]
     Indication: RENAL CANCER
     Dosage: 5 MG, 2X/DAY
     Dates: start: 20120221

REACTIONS (4)
  - WEIGHT DECREASED [None]
  - STOMATITIS [None]
  - FATIGUE [None]
  - DIARRHOEA [None]
